FAERS Safety Report 25925576 (Version 1)
Quarter: 2025Q4

REPORT INFORMATION
  Report Type: Spontaneous
  Country: US (occurrence: None)
  Receive Date: 20251014
  Receipt Date: 20251014
  Transmission Date: 20260118
  Serious: No
  Sender: FDA-CTU
  Company Number: None

PATIENT
  Age: 69 Year
  Sex: Male

DRUGS (1)
  1. LENALIDOMIDE [Suspect]
     Active Substance: LENALIDOMIDE
     Indication: Plasma cell myeloma
     Dosage: FREQUENCY : DAILY;?
     Route: 048
     Dates: start: 20220610, end: 20250903

REACTIONS (4)
  - Cytopenia [None]
  - Band neutrophil count increased [None]
  - Light chain analysis increased [None]
  - Therapy interrupted [None]

NARRATIVE: CASE EVENT DATE: 20250903
